FAERS Safety Report 7904710-0 (Version None)
Quarter: 2011Q4

REPORT INFORMATION
  Report Type: 
  Country: None (occurrence: None)
  Receive Date: 20111109
  Receipt Date: 20111102
  Transmission Date: 20120403
  Serious: Yes (Other)
  Sender: FDA-Public Use
  Company Number: TH-VIIV HEALTHCARE LIMITED-B0761343A

PATIENT
  Age: 39 Year
  Sex: Female

DRUGS (3)
  1. NEVIRAPINE [Suspect]
     Route: 065
  2. ZIDOVUDINE [Suspect]
     Route: 065
  3. LAMIVUDINE [Suspect]
     Route: 065

REACTIONS (6)
  - DRUG RASH WITH EOSINOPHILIA AND SYSTEMIC SYMPTOMS [None]
  - RASH MACULO-PAPULAR [None]
  - PYREXIA [None]
  - HEPATITIS [None]
  - EOSINOPHILIA [None]
  - LYMPHOPENIA [None]
